FAERS Safety Report 6310637-0 (Version None)
Quarter: 2009Q3

REPORT INFORMATION
  Report Type: 
  Country: None (occurrence: None)
  Receive Date: 20090814
  Receipt Date: 20090810
  Transmission Date: 20100115
  Serious: Yes (Other)
  Sender: FDA-Public Use
  Company Number: US-AMGEN-KDL356913

PATIENT
  Sex: Female
  Weight: 73.5 kg

DRUGS (7)
  1. PROCRIT [Suspect]
     Indication: DRUG USE FOR UNKNOWN INDICATION
     Route: 058
     Dates: start: 20081220, end: 20090703
  2. PREMARIN [Concomitant]
  3. INTERFERON [Concomitant]
     Dates: start: 20081101, end: 20090522
  4. RIBAVIRIN [Concomitant]
     Dates: start: 20081101, end: 20090522
  5. ALLEGRA [Concomitant]
  6. COMBIVENT [Concomitant]
  7. UNSPECIFIED MEDICATION [Concomitant]

REACTIONS (3)
  - APLASIA PURE RED CELL [None]
  - BLOOD ERYTHROPOIETIN DECREASED [None]
  - PANCYTOPENIA [None]
